FAERS Safety Report 24862493 (Version 1)
Quarter: 2025Q1

REPORT INFORMATION
  Report Type: Spontaneous
  Country: US (occurrence: US)
  Receive Date: 20250120
  Receipt Date: 20250120
  Transmission Date: 20250409
  Serious: Yes (Other)
  Sender: PFIZER
  Company Number: US-PFIZER INC-202500011095

PATIENT
  Age: 68 Year
  Sex: Female

DRUGS (1)
  1. XELJANZ XR [Suspect]
     Active Substance: TOFACITINIB CITRATE
     Dosage: 11 MG, DAILY (TAKE 11 MG TABLET ORAL DAILY)
     Route: 048
     Dates: start: 2014

REACTIONS (2)
  - Osteoarthritis [Recovered/Resolved]
  - Alopecia [Not Recovered/Not Resolved]
